FAERS Safety Report 9835695 (Version 1)
Quarter: 2014Q1

REPORT INFORMATION
  Report Type: Spontaneous
  Country: IT (occurrence: IT)
  Receive Date: 20140122
  Receipt Date: 20140122
  Transmission Date: 20141002
  Serious: Yes (Life-Threatening)
  Sender: FDA-Public Use
  Company Number: IT-BAYER-2014-010736

PATIENT
  Age: 60 Year
  Sex: Male

DRUGS (4)
  1. CARDIOASPIRIN [Suspect]
     Indication: PLATELET AGGREGATION INHIBITION
     Dosage: DAILY DOSE 100 MG
     Route: 048
     Dates: start: 2010, end: 20140105
  2. VERTISERC [Concomitant]
  3. LEVOPRAID [Concomitant]
  4. ACICLOVIR [Concomitant]
     Indication: HERPES ZOSTER OTICUS
     Dosage: UNK
     Dates: start: 201312, end: 201312

REACTIONS (3)
  - Disorientation [Not Recovered/Not Resolved]
  - Presyncope [Not Recovered/Not Resolved]
  - Cerebral infarction [Not Recovered/Not Resolved]
